FAERS Safety Report 8392234-9 (Version None)
Quarter: 2012Q2

REPORT INFORMATION
  Report Type: 
  Country: None (occurrence: None)
  Receive Date: 20120529
  Receipt Date: 20120516
  Transmission Date: 20120825
  Serious: Yes (Hospitalization, Other)
  Sender: FDA-Public Use
  Company Number: FR-ROCHE-1070243

PATIENT
  Sex: Female

DRUGS (2)
  1. AVASTIN [Suspect]
     Indication: OVARIAN CANCER
     Route: 042
  2. CYCLOPHOSPHAMIDE [Concomitant]
     Route: 048

REACTIONS (2)
  - SKIN MASS [None]
  - DISEASE PROGRESSION [None]
